FAERS Safety Report 4993279-9 (Version None)
Quarter: 2006Q1

REPORT INFORMATION
  Report Type: 
  Country: None (occurrence: None)
  Receive Date: 20060314
  Receipt Date: 20050629
  Transmission Date: 20060701
  Serious: Yes (Other)
  Sender: FDA-Public Use
  Company Number: 200511869BCC

PATIENT
  Age: 50 Year
  Sex: Female
  Weight: 72.5755 kg

DRUGS (6)
  1. ALEVE (CAPLET) [Suspect]
     Indication: ARTHRALGIA
     Dosage: 220 MG, BID, ORAL = SEE IMAGE
     Route: 048
     Dates: start: 20050301
  2. ALEVE (CAPLET) [Suspect]
     Indication: HEADACHE
     Dosage: 220 MG, BID, ORAL = SEE IMAGE
     Route: 048
     Dates: start: 20050301
  3. ALEVE (CAPLET) [Suspect]
     Indication: ARTHRALGIA
     Dosage: 220 MG, BID, ORAL = SEE IMAGE
     Route: 048
     Dates: start: 20050502
  4. ALEVE (CAPLET) [Suspect]
     Indication: HEADACHE
     Dosage: 220 MG, BID, ORAL = SEE IMAGE
     Route: 048
     Dates: start: 20050502
  5. LEVOXYL [Concomitant]
  6. CYTAMEN [Concomitant]

REACTIONS (6)
  - ANGIONEUROTIC OEDEMA [None]
  - COUGH [None]
  - DYSPNOEA [None]
  - SYNCOPE [None]
  - THROAT TIGHTNESS [None]
  - WHEEZING [None]
